FAERS Safety Report 18575731 (Version 1)
Quarter: 2020Q4

REPORT INFORMATION
  Report Type: Spontaneous
  Country: FR (occurrence: FR)
  Receive Date: 20201203
  Receipt Date: 20201203
  Transmission Date: 20210114
  Serious: Yes (Disabling)
  Sender: FDA-Public Use
  Company Number: NVSC2020FR319453

PATIENT
  Age: 39 Year
  Sex: Male
  Weight: 147 kg

DRUGS (1)
  1. NEORAL [Suspect]
     Active Substance: CYCLOSPORINE
     Indication: RENAL TRANSPLANT
     Dosage: 280 MG, QD
     Route: 048
     Dates: start: 20200119

REACTIONS (1)
  - Post transplant distal limb syndrome [Not Recovered/Not Resolved]

NARRATIVE: CASE EVENT DATE: 202006
